FAERS Safety Report 16664682 (Version 1)
Quarter: 2019Q3

REPORT INFORMATION
  Report Type: Spontaneous
  Country: RO (occurrence: RO)
  Receive Date: 20190803
  Receipt Date: 20190803
  Transmission Date: 20191004
  Serious: Yes (Other)
  Sender: FDA-Public Use
  Company Number: RO-AUROBINDO-AUR-APL-2019-044817

PATIENT

DRUGS (2)
  1. CLOPIDOGREL [Suspect]
     Active Substance: CLOPIDOGREL BISULFATE
     Indication: PRODUCT USED FOR UNKNOWN INDICATION
     Dosage: UNK, DUAL ANTIPLATELET AND ANTICOAGULANT DRUGS
     Route: 065
  2. ASPIRIN. [Suspect]
     Active Substance: ASPIRIN
     Indication: PRODUCT USED FOR UNKNOWN INDICATION
     Dosage: UNK, DUAL ANTIPLATELET AND ANTICOAGULANT DRUGS
     Route: 065

REACTIONS (4)
  - Inflammation [Recovered/Resolved]
  - Cholelithiasis [Recovered/Resolved]
  - Cholecystitis acute [Recovered/Resolved]
  - Haemorrhagic cholecystitis [Recovered/Resolved]
